FAERS Safety Report 14177874 (Version 1)
Quarter: 2017Q4

REPORT INFORMATION
  Report Type: Spontaneous
  Country: FR (occurrence: FR)
  Receive Date: 20171110
  Receipt Date: 20171110
  Transmission Date: 20180321
  Serious: Yes (Hospitalization)
  Sender: FDA-Public Use
  Company Number: PHHY2017FR124516

PATIENT
  Age: 6 Year
  Sex: Female

DRUGS (1)
  1. TEGRETOL [Suspect]
     Active Substance: CARBAMAZEPINE
     Indication: PARTIAL SEIZURES
     Dosage: UNK
     Route: 048
     Dates: start: 201608, end: 201609

REACTIONS (10)
  - Face oedema [Recovered/Resolved]
  - Rash maculo-papular [Recovered/Resolved]
  - Toxic skin eruption [Recovered/Resolved]
  - Pruritus [Recovered/Resolved]
  - Conjunctivitis [Recovered/Resolved]
  - Pyrexia [Recovered/Resolved]
  - Cheilitis [Recovered/Resolved]
  - Cholestasis [Unknown]
  - Oedema peripheral [Recovered/Resolved]
  - Skin exfoliation [Recovered/Resolved]

NARRATIVE: CASE EVENT DATE: 201609
